FAERS Safety Report 8357802-9 (Version None)
Quarter: 2012Q2

REPORT INFORMATION
  Report Type: 
  Country: None (occurrence: None)
  Receive Date: 20120514
  Receipt Date: 20120509
  Transmission Date: 20120825
  Serious: Yes (Death, Hospitalization)
  Sender: FDA-Public Use
  Company Number: CN-ELI_LILLY_AND_COMPANY-CN201010004109

PATIENT
  Sex: Female
  Weight: 52 kg

DRUGS (14)
  1. ASPIRIN [Concomitant]
  2. MOSAPRIDE [Concomitant]
     Indication: DECREASED APPETITE
     Dosage: UNK
     Dates: start: 20100927, end: 20101013
  3. SODIUM ASCORBATE [Concomitant]
  4. DIPROPHYLLINE [Concomitant]
     Dosage: UNK, UNK
     Dates: start: 20101015
  5. CODEINE PHOSPHATE [Concomitant]
     Dosage: UNK, UNK
     Dates: start: 20101012
  6. GLUCOSE [Concomitant]
     Dosage: UNK, UNK
     Dates: start: 20100925
  7. AMBROXOL [Concomitant]
     Indication: COUGH
     Dosage: UNK, UNK
     Dates: start: 20100927
  8. CEFAZOLIN SODIUM [Concomitant]
     Dosage: UNK, UNK
     Dates: start: 20101016
  9. GEMCITABINE HYDROCHLORIDE [Suspect]
     Indication: NON-SMALL CELL LUNG CANCER
     Dosage: 1250 MG/M2, DAYS 1 AND 8 EVERY 21 DAYS
     Route: 042
     Dates: start: 20100926
  10. SODIUM CHLORIDE [Concomitant]
     Dosage: 0.9 %, UNK
     Dates: start: 20100928
  11. CISPLATIN [Suspect]
     Indication: NON-SMALL CELL LUNG CANCER
     Dosage: 75 MG/M2, DAY 1 EVERY 21 DAYS
     Route: 042
     Dates: start: 20100926
  12. DOXOFYLLINE [Concomitant]
     Dosage: UNK, UNK
     Dates: start: 20100925
  13. THEOPHYLLINE [Concomitant]
     Indication: ASTHMA
     Dosage: UNK
     Dates: start: 20100927, end: 20101017
  14. PARNAPARIN SODIUM [Concomitant]

REACTIONS (1)
  - PULMONARY EMBOLISM [None]
